FAERS Safety Report 4499348-4 (Version None)
Quarter: 2004Q4

REPORT INFORMATION
  Report Type: 
  Country: None (occurrence: None)
  Receive Date: 20041111
  Receipt Date: 20041103
  Transmission Date: 20050328
  Serious: Yes (Hospitalization)
  Sender: FDA-Public Use
  Company Number: NL-MERCK-0411NLD00004

PATIENT
  Age: 65 Year
  Sex: Male

DRUGS (2)
  1. ZOCOR [Suspect]
     Route: 048
  2. ASPIRIN [Concomitant]
     Route: 048

REACTIONS (6)
  - C-REACTIVE PROTEIN INCREASED [None]
  - CHEST PAIN [None]
  - DYSPNOEA [None]
  - HYPERSENSITIVITY [None]
  - PHARYNGOLARYNGEAL PAIN [None]
  - PYREXIA [None]
